FAERS Safety Report 6260424-7 (Version None)
Quarter: 2009Q3

REPORT INFORMATION
  Report Type: 
  Country: None (occurrence: None)
  Receive Date: 20090708
  Receipt Date: 20090701
  Transmission Date: 20100115
  Serious: Yes (Hospitalization)
  Sender: FDA-Public Use
  Company Number: JP-B.I. PHARMACEUTICALS,INC./RIDGEFIELD-2009-BP-07935NB

PATIENT
  Age: 89 Year
  Sex: Female

DRUGS (2)
  1. MOBIC [Suspect]
     Indication: BACK PAIN
     Dosage: 30 MG
     Route: 048
  2. LOXONIN [Suspect]
     Indication: ARTHRALGIA
     Dosage: 180 MG
     Route: 048

REACTIONS (2)
  - OVERDOSE [None]
  - RENAL FAILURE CHRONIC [None]
